FAERS Safety Report 8584819-1 (Version None)
Quarter: 2012Q3

REPORT INFORMATION
  Report Type: 
  Country: None (occurrence: None)
  Receive Date: 20120810
  Receipt Date: 20120801
  Transmission Date: 20120928
  Serious: Yes (Other)
  Sender: FDA-Public Use
  Company Number: CA-JNJFOC-20120801794

PATIENT
  Sex: Male

DRUGS (1)
  1. REMICADE [Suspect]
     Indication: FOETAL EXPOSURE DURING PREGNANCY
     Route: 050

REACTIONS (2)
  - PREMATURE BABY [None]
  - NASOPHARYNGITIS [None]
